FAERS Safety Report 5792139-3 (Version None)
Quarter: 2008Q2

REPORT INFORMATION
  Report Type: 
  Country: None (occurrence: None)
  Receive Date: 20080626
  Receipt Date: 20080617
  Transmission Date: 20081010
  Serious: Yes (Other)
  Sender: FDA-Public Use
  Company Number: DE-ELI_LILLY_AND_COMPANY-DE200806004221

PATIENT
  Age: 68 Year
  Sex: Male

DRUGS (4)
  1. HUMALOG [Suspect]
     Indication: TYPE 2 DIABETES MELLITUS
     Dosage: UNK, UNKNOWN
     Route: 058
     Dates: start: 20070901
  2. INSULIN [Concomitant]
     Dosage: UNK, UNKNOWN
     Route: 065
  3. ANTI-ASTHMATICS [Concomitant]
     Dosage: UNK, UNKNOWN
     Route: 065
  4. COUGH AND COLD PREPARATIONS [Concomitant]
     Dosage: UNK, UNKNOWN
     Route: 065

REACTIONS (7)
  - CARDIAC DISORDER [None]
  - COLD SWEAT [None]
  - COUGH [None]
  - DYSPNOEA [None]
  - FATIGUE [None]
  - HEADACHE [None]
  - NERVOUSNESS [None]
